FAERS Safety Report 12591605 (Version 1)
Quarter: 2016Q3

REPORT INFORMATION
  Report Type: Spontaneous
  Country: US (occurrence: None)
  Receive Date: 20160725
  Receipt Date: 20160725
  Transmission Date: 20161109
  Serious: Yes (Hospitalization, Disabling)
  Sender: FDA-Public Use
  Company Number: None

PATIENT
  Age: 25 Year
  Sex: Female
  Weight: 56.7 kg

DRUGS (2)
  1. ORTHO TRI CYCLEN LO [Concomitant]
     Active Substance: ETHINYL ESTRADIOL\NORGESTIMATE
  2. VIGAMOX [Suspect]
     Active Substance: MOXIFLOXACIN HYDROCHLORIDE
     Indication: CONJUNCTIVITIS
     Route: 047
     Dates: start: 20160707, end: 20160708

REACTIONS (8)
  - Ocular hyperaemia [None]
  - Visual acuity reduced [None]
  - Dry eye [None]
  - Eye swelling [None]
  - Vision blurred [None]
  - Eye pain [None]
  - Photosensitivity reaction [None]
  - Impaired driving ability [None]

NARRATIVE: CASE EVENT DATE: 20160708
